FAERS Safety Report 5913076-7 (Version None)
Quarter: 2008Q4

REPORT INFORMATION
  Report Type: 
  Country: None (occurrence: None)
  Receive Date: 20081008
  Receipt Date: 20081008
  Transmission Date: 20090506
  Serious: Yes (Life-Threatening)
  Sender: FDA-Public Use
  Company Number: None

PATIENT
  Sex: Male
  Weight: 77.1115 kg

DRUGS (1)
  1. REMICADE [Suspect]
     Indication: RHEUMATOID ARTHRITIS
     Dosage: 500 UNITS EVERY 7 WEEKS INFUSION
     Dates: start: 20010101, end: 20080101

REACTIONS (4)
  - HISTOPLASMOSIS [None]
  - INFLUENZA LIKE ILLNESS [None]
  - ORAL CANDIDIASIS [None]
  - WEIGHT DECREASED [None]
